FAERS Safety Report 7472538-4 (Version None)
Quarter: 2011Q2

REPORT INFORMATION
  Report Type: 
  Country: None (occurrence: None)
  Receive Date: 20110511
  Receipt Date: 20101015
  Transmission Date: 20111010
  Serious: No
  Sender: FDA-Public Use
  Company Number: US-AMGEN-TCS435633

PATIENT
  Age: 53 Year
  Sex: Male

DRUGS (2)
  1. ENBREL [Suspect]
     Dosage: 50 MG, 2 TIMES/WK
     Dates: start: 20100128, end: 20100331
  2. METFORMIN HCL [Concomitant]
     Indication: DIABETES MELLITUS

REACTIONS (4)
  - RASH ERYTHEMATOUS [None]
  - EXFOLIATIVE RASH [None]
  - THERAPEUTIC RESPONSE DECREASED [None]
  - DERMATITIS PSORIASIFORM [None]
